FAERS Safety Report 11482684 (Version 1)
Quarter: 2015Q3

REPORT INFORMATION
  Report Type: Spontaneous
  Country: US (occurrence: None)
  Receive Date: 20150908
  Receipt Date: 20150908
  Transmission Date: 20151125
  Serious: Yes (Other)
  Sender: FDA-Public Use
  Company Number: DEP_12581_2015

PATIENT
  Age: 52 Year
  Sex: Female
  Weight: 127.01 kg

DRUGS (5)
  1. TYLENOL WITH CODEINE [Concomitant]
     Active Substance: ACETAMINOPHEN\CODEINE PHOSPHATE
  2. GRALISE [Suspect]
     Active Substance: GABAPENTIN
     Indication: FIBROMYALGIA
     Dosage: SAMPLE PACK, TITRATED UP TO 1500 MG, WITH MORNING MEAL
     Route: 048
     Dates: start: 20150817
  3. GRALISE [Suspect]
     Active Substance: GABAPENTIN
     Indication: OFF LABEL USE
     Dosage: SAMPLE PACK, TITRATED UP TO 1500 MG, WITH MORNING MEAL
     Route: 048
     Dates: start: 20150817
  4. CLONIDINE. [Concomitant]
     Active Substance: CLONIDINE
  5. TYLENOL WITH CODEIN #4 [Concomitant]

REACTIONS (2)
  - Headache [None]
  - Dyspnoea [None]

NARRATIVE: CASE EVENT DATE: 20150817
